FAERS Safety Report 7343080-6 (Version None)
Quarter: 2011Q1

REPORT INFORMATION
  Report Type: 
  Country: None (occurrence: None)
  Receive Date: 20110310
  Receipt Date: 20110302
  Transmission Date: 20110831
  Serious: Yes (Other)
  Sender: FDA-Public Use
  Company Number: JP-B.I. PHARMACEUTICALS,INC./RIDGEFIELD-2011-DE-01170GD

PATIENT
  Age: 79 Year
  Sex: Female

DRUGS (6)
  1. TRICHLORMETHIAZIDE [Concomitant]
     Dosage: 1 NR
     Route: 048
  2. TRIAZOLAM [Concomitant]
     Dosage: 0.125 NR
     Route: 048
  3. PITAVASTATIN [Concomitant]
     Dosage: 1 NR
     Route: 048
  4. AMLODIPINE BESYLATE [Concomitant]
     Dosage: 5 NR
     Route: 048
  5. ASPIRIN [Suspect]
     Dosage: 100 NR
     Route: 048
  6. TELMISARTAN [Suspect]
     Dosage: 40 NR
     Route: 048

REACTIONS (1)
  - DIVERTICULUM INTESTINAL HAEMORRHAGIC [None]
